FAERS Safety Report 10678905 (Version 5)
Quarter: 2017Q3

REPORT INFORMATION
  Report Type: Spontaneous
  Country: US (occurrence: US)
  Receive Date: 20141229
  Receipt Date: 20170906
  Transmission Date: 20171127
  Serious: No
  Sender: FDA-Public Use
  Company Number: US-PFIZER INC-2014356276

PATIENT
  Age: 63 Year
  Sex: Female

DRUGS (23)
  1. LISINOPRIL. [Concomitant]
     Active Substance: LISINOPRIL
     Dosage: 10 MG, DAILY
     Route: 048
     Dates: start: 20170628
  2. ARIMIDEX [Concomitant]
     Active Substance: ANASTROZOLE
     Dosage: 1 MG, 1X/DAY
     Route: 048
     Dates: start: 20160404
  3. LYRICA [Suspect]
     Active Substance: PREGABALIN
     Dosage: 200 MG, 2X/DAY
     Dates: start: 20130710
  4. NORCO [Concomitant]
     Active Substance: ACETAMINOPHEN\HYDROCODONE BITARTRATE
     Indication: PAIN
     Dosage: 1 DF, AS NEEDED, (TAKE 1 TABLET EVERY 8 HOURS, HYDROCODONE BITARTRATE 10 MG, PARACETAMOL 325 MG )
     Dates: start: 20140305
  5. ACETAMINOPHEN W/HYDROCODONE [Concomitant]
     Active Substance: ACETAMINOPHEN\HYDROCODONE
     Dosage: UNK, AS NEEDED  [(ACETAMENOPHEN 325 MG) (HYDROCODONE 10 MG)]
     Route: 048
     Dates: start: 20170426, end: 20170823
  6. LYRICA [Suspect]
     Active Substance: PREGABALIN
     Dosage: 100 MG, 3X/DAY
     Dates: start: 20131101
  7. MOBIC [Concomitant]
     Active Substance: MELOXICAM
     Dosage: 7.5 MG, DAILY
     Dates: start: 20130307
  8. CELEXA [Concomitant]
     Active Substance: CITALOPRAM HYDROBROMIDE
     Dosage: 20 MG, 1X/DAY
     Route: 048
     Dates: start: 20170823
  9. LISINOPRIL. [Concomitant]
     Active Substance: LISINOPRIL
     Dosage: 2.5 MG, DAILY
     Dates: start: 20130710
  10. VALIUM [Concomitant]
     Active Substance: DIAZEPAM
     Dosage: 10 MG, AS NEEDED (1 TABLET EVERY 8 HOURS)
     Dates: start: 20130306
  11. CELEXA [Concomitant]
     Active Substance: CITALOPRAM HYDROBROMIDE
     Dosage: 20 MG, 1X/DAY
     Dates: start: 20130423
  12. LORATADINE. [Concomitant]
     Active Substance: LORATADINE
     Dosage: 10 MG, DAILY
     Route: 048
     Dates: start: 20170426
  13. LYRICA [Suspect]
     Active Substance: PREGABALIN
     Dosage: 200 MG, 3X/DAY
  14. AMBIEN [Concomitant]
     Active Substance: ZOLPIDEM TARTRATE
     Dosage: 10 MG, 1X/DAY (AT BEDTIME)
     Route: 048
     Dates: start: 20130423
  15. BUPROPION HCL [Concomitant]
     Active Substance: BUPROPION HYDROCHLORIDE
     Dosage: 300 MG, 1X/DAY (300 MG X R24H-TAB )
     Dates: start: 20141002
  16. CLARITIN [Concomitant]
     Active Substance: LORATADINE
     Dosage: 10 MG, 1X/DAY
     Route: 048
     Dates: start: 20150203
  17. BUPROPION HCL [Concomitant]
     Active Substance: BUPROPION HYDROCHLORIDE
     Dosage: 300 MG, DAILY
     Route: 048
     Dates: start: 20170426
  18. MELOXICAM. [Concomitant]
     Active Substance: MELOXICAM
     Dosage: 15 MG, 1X/DAY
     Route: 048
     Dates: start: 20170823
  19. LYRICA [Suspect]
     Active Substance: PREGABALIN
     Dosage: 200 MG, 2X/DAY
     Route: 048
     Dates: start: 20170426
  20. ARIMIDEX [Concomitant]
     Active Substance: ANASTROZOLE
     Dosage: 1 MG, DAILY
     Route: 048
     Dates: start: 20170426
  21. CARISOPRODOL. [Concomitant]
     Active Substance: CARISOPRODOL
     Dosage: 350 MG, AS NEEDED (2 TIMES A DAY)
     Route: 048
  22. ATORVASTATIN CALCIUM. [Concomitant]
     Active Substance: ATORVASTATIN CALCIUM
     Dosage: 10 MG, (QHS)
     Route: 048
     Dates: start: 20170504
  23. QUETIAPINE. [Concomitant]
     Active Substance: QUETIAPINE
     Dosage: 300 MG, 1X/DAY (QHS)
     Route: 048
     Dates: start: 20170628, end: 20170823

REACTIONS (3)
  - Feeling abnormal [Unknown]
  - Arthralgia [Unknown]
  - Back pain [Not Recovered/Not Resolved]
